FAERS Safety Report 14193716 (Version 1)
Quarter: 2017Q4

REPORT INFORMATION
  Report Type: Spontaneous
  Country: RU (occurrence: RU)
  Receive Date: 20171116
  Receipt Date: 20171116
  Transmission Date: 20180321
  Serious: Yes (Other)
  Sender: FDA-Public Use
  Company Number: RU-ASTRAZENECA-2017SF15283

PATIENT
  Age: 89 Year
  Sex: Female
  Weight: 80 kg

DRUGS (7)
  1. LIPRIMAR [Concomitant]
     Active Substance: ATORVASTATIN CALCIUM
     Dates: start: 2015
  2. OMEZ [Concomitant]
     Active Substance: OMEPRAZOLE
     Dates: start: 2015
  3. CARDIOMAGNYL [Concomitant]
     Active Substance: ASPIRIN\MAGNESIUM HYDROXIDE
     Dates: start: 2015
  4. LOSAP [Concomitant]
     Dates: start: 2015
  5. CONCOR [Concomitant]
     Active Substance: BISOPROLOL FUMARATE
     Dates: start: 2015
  6. MOXONIDINE [Concomitant]
     Active Substance: MOXONIDINE
  7. BRILINTA [Suspect]
     Active Substance: TICAGRELOR
     Indication: MYOCARDIAL INFARCTION
     Route: 048
     Dates: start: 201512

REACTIONS (3)
  - Product use issue [Unknown]
  - Off label use [Unknown]
  - Blood pressure increased [Recovering/Resolving]
